FAERS Safety Report 10774879 (Version 3)
Quarter: 2015Q1

REPORT INFORMATION
  Report Type: Report from Study
  Country: CA (occurrence: CA)
  Receive Date: 20150209
  Receipt Date: 20150223
  Transmission Date: 20150721
  Serious: Yes (Other)
  Sender: FDA-Public Use
  Company Number: CA-ROCHE-1518357

PATIENT
  Age: 47 Year
  Sex: Male
  Weight: 88 kg

DRUGS (4)
  1. WARFARIN [Concomitant]
     Active Substance: WARFARIN
  2. DEXAMETHASONE. [Concomitant]
     Active Substance: DEXAMETHASONE
  3. KEPPRA [Concomitant]
     Active Substance: LEVETIRACETAM
  4. AVASTIN [Suspect]
     Active Substance: BEVACIZUMAB
     Indication: GLIOBLASTOMA
     Route: 041
     Dates: start: 20150106

REACTIONS (6)
  - Blood pressure increased [Unknown]
  - Skin fissures [Unknown]
  - Dysphemia [Not Recovered/Not Resolved]
  - Peripheral swelling [Unknown]
  - Infusion related reaction [Unknown]
  - Epistaxis [Unknown]

NARRATIVE: CASE EVENT DATE: 20150106
